FAERS Safety Report 12377881 (Version 2)
Quarter: 2016Q2

REPORT INFORMATION
  Report Type: Spontaneous
  Country: US (occurrence: US)
  Receive Date: 20160517
  Receipt Date: 20160608
  Transmission Date: 20160815
  Serious: No
  Sender: FDA-Public Use
  Company Number: US-JNJFOC-20160412408

PATIENT
  Age: 79 Year
  Sex: Female
  Weight: 56.25 kg

DRUGS (4)
  1. TYLENOL 8 HR [Suspect]
     Active Substance: ACETAMINOPHEN
     Indication: SCIATICA
     Dosage: 3 X PER DAY ABOUT 10 DAYS AGO WITH LOTS OF WATER
     Route: 048
     Dates: start: 20160410, end: 20160413
  2. BETABLOCK [Concomitant]
     Indication: NERVE COMPRESSION
     Dosage: 3 X PER DAY ABOUT 10 DAYS AGO WITH LOTS OF WATER
     Route: 048
     Dates: start: 20160410, end: 20160413
  3. TYLENOL 8 HR [Suspect]
     Active Substance: ACETAMINOPHEN
     Route: 048
  4. VITAMIN PREPARATION COMPOUND [Concomitant]
     Active Substance: VITAMINS
     Indication: PRODUCT USED FOR UNKNOWN INDICATION
     Dosage: 3 X PER DAY ABOUT 10 DAYS AGO WITH LOTS OF WATER
     Route: 048

REACTIONS (3)
  - Pruritus [Recovered/Resolved]
  - Rash pruritic [Recovered/Resolved]
  - Panic attack [Unknown]

NARRATIVE: CASE EVENT DATE: 20160410
